FAERS Safety Report 22088441 (Version 4)
Quarter: 2023Q4

REPORT INFORMATION
  Report Type: Spontaneous
  Country: US (occurrence: US)
  Receive Date: 20230313
  Receipt Date: 20231018
  Transmission Date: 20240110
  Serious: No
  Sender: FDA-Public Use
  Company Number: US-PHARMAESSENTIA CORPORATION-US-2023-PEC-001046

PATIENT
  Sex: Female

DRUGS (3)
  1. BESREMI [Suspect]
     Active Substance: ROPEGINTERFERON ALFA-2B-NJFT
     Indication: Myeloproliferative neoplasm
     Dosage: 100 MCG, Q2W
     Route: 058
     Dates: start: 20230210
  2. BESREMI [Suspect]
     Active Substance: ROPEGINTERFERON ALFA-2B-NJFT
     Dosage: 150 MCG, Q2W
     Route: 058
  3. BESREMI [Suspect]
     Active Substance: ROPEGINTERFERON ALFA-2B-NJFT
     Dosage: 100 MCG, Q2W
     Route: 058

REACTIONS (14)
  - Off label use [Unknown]
  - Renal pain [Not Recovered/Not Resolved]
  - Uterine inflammation [Unknown]
  - Inflammation [Unknown]
  - Multi-organ disorder [Unknown]
  - Pollakiuria [Unknown]
  - Bladder pain [Not Recovered/Not Resolved]
  - Thirst [Unknown]
  - Back pain [Not Recovered/Not Resolved]
  - Micturition urgency [Unknown]
  - Confusional state [Unknown]
  - Bone pain [Unknown]
  - Myalgia [Unknown]
  - Abdominal pain [Unknown]

NARRATIVE: CASE EVENT DATE: 20230210
